FAERS Safety Report 8787740 (Version 1)
Quarter: 2012Q4

REPORT INFORMATION
  Report Type: Report from Study
  Country: US (occurrence: US)
  Receive Date: 20120914
  Receipt Date: 20120914
  Transmission Date: 20130627
  Serious: No
  Sender: FDA-Public Use
  Company Number: US-VERTEX PHARMACEUTICAL INC.-AE-2012-008274

PATIENT

DRUGS (4)
  1. INCIVEK [Suspect]
     Indication: HEPATITIS C
     Route: 048
     Dates: start: 20120319
  2. PEGASYS [Concomitant]
     Indication: HEPATITIS C
     Route: 058
     Dates: start: 20120319
  3. RIBASPHERE [Concomitant]
     Indication: HEPATITIS C
     Dates: start: 20120319
  4. DICLOFENAC [Concomitant]
     Route: 048

REACTIONS (3)
  - Rash generalised [Unknown]
  - Anaemia [Unknown]
  - Pruritus [Unknown]
